FAERS Safety Report 7950320-9 (Version None)
Quarter: 2011Q4

REPORT INFORMATION
  Report Type: 
  Country: None (occurrence: None)
  Receive Date: 20111130
  Receipt Date: 20111118
  Transmission Date: 20120403
  Serious: Yes (Death)
  Sender: FDA-Public Use
  Company Number: CA-ELI_LILLY_AND_COMPANY-CA201111005899

PATIENT
  Sex: Male

DRUGS (3)
  1. ZYPREXA [Suspect]
     Dosage: 5 MG, UNK
  2. ZYPREXA [Suspect]
     Dosage: 10 MG, UNK
  3. ZYPREXA [Suspect]
     Dosage: 15 MG, UNK

REACTIONS (1)
  - DEATH [None]
